FAERS Safety Report 5002599-3 (Version None)
Quarter: 2006Q2

REPORT INFORMATION
  Report Type: 
  Country: None (occurrence: None)
  Receive Date: 20060515
  Receipt Date: 20050113
  Transmission Date: 20061013
  Serious: Yes (Hospitalization)
  Sender: FDA-Public Use
  Company Number: US-MERCK-0501USA01808

PATIENT
  Age: 76 Year
  Sex: Female
  Weight: 77 kg

DRUGS (11)
  1. VIOXX [Suspect]
     Indication: BACK PAIN
     Route: 048
     Dates: start: 20000101, end: 20040101
  2. VIOXX [Suspect]
     Indication: ARTHRITIS
     Route: 048
     Dates: start: 20000101, end: 20040101
  3. ASPIRIN [Concomitant]
     Route: 048
  4. MOMETASONE FUROATE [Concomitant]
     Route: 055
  5. PERSANTINE [Concomitant]
     Route: 048
  6. RAMIPRIL [Concomitant]
     Route: 048
  7. SYNTHROID [Concomitant]
     Route: 048
  8. PREMARIN [Concomitant]
     Route: 048
  9. CELEBREX [Concomitant]
     Route: 048
  10. LIPITOR [Concomitant]
     Route: 048
  11. AMITRIPTYLINE HYDROCHLORIDE AND PERPHENAZINE [Concomitant]
     Route: 048

REACTIONS (31)
  - ABDOMINAL PAIN [None]
  - ANAEMIA [None]
  - ANXIETY [None]
  - ASTHENIA [None]
  - ATELECTASIS [None]
  - ATRIOVENTRICULAR BLOCK FIRST DEGREE [None]
  - BACK PAIN [None]
  - BRAIN STEM INFARCTION [None]
  - CEREBROVASCULAR ACCIDENT [None]
  - CONCUSSION [None]
  - CONSTIPATION [None]
  - DEEP VEIN THROMBOSIS [None]
  - DEPRESSION [None]
  - DIFFICULTY IN WALKING [None]
  - DIZZINESS [None]
  - DYSARTHRIA [None]
  - DYSPHAGIA [None]
  - FALL [None]
  - GASTROINTESTINAL PAIN [None]
  - GASTROOESOPHAGEAL REFLUX DISEASE [None]
  - HAEMORRHAGE [None]
  - HEMIPARESIS [None]
  - HYPERTENSION [None]
  - HYPOXIA [None]
  - INTESTINAL OBSTRUCTION [None]
  - OEDEMA PERIPHERAL [None]
  - PLEURAL EFFUSION [None]
  - POLLAKIURIA [None]
  - SINUS TACHYCARDIA [None]
  - SLEEP DISORDER [None]
  - THROMBOSIS [None]
